FAERS Safety Report 8153977-5 (Version None)
Quarter: 2012Q1

REPORT INFORMATION
  Report Type: 
  Country: None (occurrence: None)
  Receive Date: 20120221
  Receipt Date: 20120221
  Transmission Date: 20120608
  Serious: Yes (Other)
  Sender: FDA-Public Use
  Company Number: None

PATIENT
  Sex: Male
  Weight: 63.502 kg

DRUGS (2)
  1. RIBAVIRIN [Concomitant]
  2. INTERFERON [Suspect]
     Indication: HEPATITIS C

REACTIONS (3)
  - ANAEMIA [None]
  - IDIOPATHIC PULMONARY FIBROSIS [None]
  - THROMBOCYTOPENIA [None]
